FAERS Safety Report 8890192 (Version 2)
Quarter: 2013Q1

REPORT INFORMATION
  Report Type: Spontaneous
  Country: US (occurrence: US)
  Receive Date: 20121107
  Receipt Date: 20130102
  Transmission Date: 20140127
  Serious: Yes (Death)
  Sender: FDA-Public Use
  Company Number: US-PFIZER INC-2012275176

PATIENT
  Age: 73 Year
  Sex: Male

DRUGS (13)
  1. VFEND [Suspect]
     Indication: ASPERGILLUS INFECTION
     Dosage: 200 MG, EVERY 12 HOURS
     Route: 048
  2. VFEND [Suspect]
     Dosage: 200 MG, UNK
     Route: 048
  3. VFEND [Suspect]
     Dosage: 100 MG, UNK
     Route: 048
  4. VFEND [Suspect]
     Dosage: 100 MG, EVERY 12 HOURS
  5. VFEND [Suspect]
     Dosage: 100 MG, 2X/DAY
     Dates: start: 20121021, end: 20121024
  6. VFEND [Suspect]
     Indication: ASPERGILLUS INFECTION
     Dosage: 200 MG, EVERY 12 HOURS
     Route: 042
  7. VFEND [Suspect]
     Dosage: 300 MG, EVERY 12 HOURS
     Route: 042
  8. CLARITIN [Concomitant]
     Dosage: 10 MG, UNK
  9. ALBUTEROL [Concomitant]
     Dosage: UNK
  10. LORAZEPAM [Concomitant]
     Dosage: 0.5 MG, UNK
  11. CELEXA [Concomitant]
     Dosage: 20 MG, UNK
  12. SPIRIVA [Concomitant]
     Dosage: UNK
  13. MORPHINE [Concomitant]
     Dosage: UNK

REACTIONS (3)
  - Pneumothorax spontaneous [Fatal]
  - Blood alkaline phosphatase increased [Unknown]
  - Aspartate aminotransferase increased [Unknown]
